FAERS Safety Report 24261312 (Version 1)
Quarter: 2024Q3

REPORT INFORMATION
  Report Type: Spontaneous
  Country: US (occurrence: US)
  Receive Date: 20240829
  Receipt Date: 20240829
  Transmission Date: 20241016
  Serious: No
  Sender: CHATTEM
  Company Number: US-OPELLA-2024OHG029058

PATIENT
  Age: 8 Year
  Sex: Male

DRUGS (1)
  1. CHILDRENS ALLEGRA ALLERGY [Suspect]
     Active Substance: FEXOFENADINE HYDROCHLORIDE
     Indication: Hypersensitivity
     Dosage: FREQUENCY: ONCE

REACTIONS (2)
  - Extra dose administered [Unknown]
  - No adverse event [Unknown]
